FAERS Safety Report 6107452-X (Version None)
Quarter: 2009Q1

REPORT INFORMATION
  Report Type: 
  Country: None (occurrence: None)
  Receive Date: 20090309
  Receipt Date: 20090223
  Transmission Date: 20090719
  Serious: Yes (Other)
  Sender: FDA-Public Use
  Company Number: SE-PFIZER INC-2009174695

PATIENT

DRUGS (1)
  1. CHAMPIX [Suspect]
     Dosage: UNKNOWN

REACTIONS (1)
  - EPILEPSY [None]
